FAERS Safety Report 15698635 (Version 1)
Quarter: 2018Q4

REPORT INFORMATION
  Report Type: Spontaneous
  Country: US (occurrence: US)
  Receive Date: 20181126
  Receipt Date: 20181126
  Transmission Date: 20190205
  Serious: Yes (Hospitalization)
  Sender: FDA-Public Use
  Company Number: None

PATIENT
  Age: 66 Year
  Sex: Female

DRUGS (20)
  1. ALLOPURINOL. [Concomitant]
     Active Substance: ALLOPURINOL
  2. DULOXETINE. [Concomitant]
     Active Substance: DULOXETINE
  3. FLUTICAAONE [Concomitant]
  4. TRAZODONE [Concomitant]
     Active Substance: TRAZODONE HYDROCHLORIDE
  5. ALBUTEROL. [Concomitant]
     Active Substance: ALBUTEROL
  6. PROCHLORPERAZINE. [Suspect]
     Active Substance: PROCHLORPERAZINE
  7. SODIUM BICARBONATE. [Concomitant]
     Active Substance: SODIUM BICARBONATE
  8. VANCOMYCIN [Suspect]
     Active Substance: VANCOMYCIN
     Indication: OSTEOMYELITIS
     Dosage: ?          OTHER DOSE:1.5 G;?
     Route: 042
     Dates: start: 20180816, end: 20180820
  9. CLOTRIMAZOLE TRACHEA [Concomitant]
  10. GABAPENTIN. [Concomitant]
     Active Substance: GABAPENTIN
  11. PANTOPRAZOLE [Concomitant]
     Active Substance: PANTOPRAZOLE
  12. DOCUSATE [Concomitant]
     Active Substance: DOCUSATE
  13. NIFEDIPINE. [Concomitant]
     Active Substance: NIFEDIPINE
  14. ONDANSETRON [Concomitant]
     Active Substance: ONDANSETRON
  15. TACROLIMUS. [Suspect]
     Active Substance: TACROLIMUS
  16. LEVOTHYROXINE. [Concomitant]
     Active Substance: LEVOTHYROXINE
  17. FAMOTIDINE. [Concomitant]
     Active Substance: FAMOTIDINE
  18. FUROSEMIDE. [Concomitant]
     Active Substance: FUROSEMIDE
  19. ZOLPIDEM [Concomitant]
     Active Substance: ZOLPIDEM\ZOLPIDEM TARTRATE
  20. LORAZAPAM [Concomitant]
     Active Substance: LORAZEPAM

REACTIONS (2)
  - Antibiotic level above therapeutic [None]
  - Blood creatinine increased [None]

NARRATIVE: CASE EVENT DATE: 20180818
